FAERS Safety Report 20317789 (Version 1)
Quarter: 2022Q1

REPORT INFORMATION
  Report Type: Report from Study
  Country: GB (occurrence: GB)
  Receive Date: 20220110
  Receipt Date: 20220110
  Transmission Date: 20220424
  Serious: Yes (Death, Other)
  Sender: FDA-Public Use
  Company Number: GB-GLAXOSMITHKLINE-GB2022EME002925

PATIENT
  Age: 74 Year
  Sex: Male

DRUGS (1)
  1. MEPOLIZUMAB [Suspect]
     Active Substance: MEPOLIZUMAB
     Indication: Asthma
     Dosage: 100 MG
     Dates: start: 202003, end: 202112

REACTIONS (1)
  - Death [Fatal]

NARRATIVE: CASE EVENT DATE: 20211201
